FAERS Safety Report 5711746-7 (Version None)
Quarter: 2008Q2

REPORT INFORMATION
  Report Type: 
  Country: None (occurrence: None)
  Receive Date: 20080421
  Receipt Date: 20080409
  Transmission Date: 20081010
  Serious: Yes (Other)
  Sender: FDA-Public Use
  Company Number: CA-PFIZER INC-2008019760

PATIENT
  Sex: Female
  Weight: 65.8 kg

DRUGS (2)
  1. LYRICA [Suspect]
     Indication: FIBROMYALGIA
     Route: 048
     Dates: start: 20070717, end: 20071010
  2. ZYTRAM [Concomitant]

REACTIONS (10)
  - CONSTIPATION [None]
  - CONVULSION [None]
  - DERMATITIS BULLOUS [None]
  - INSOMNIA [None]
  - MUSCLE TWITCHING [None]
  - OEDEMA PERIPHERAL [None]
  - SUICIDAL IDEATION [None]
  - TONGUE BITING [None]
  - TREMOR [None]
  - WEIGHT INCREASED [None]
